FAERS Safety Report 9012752 (Version 1)
Quarter: 2013Q1

REPORT INFORMATION
  Report Type: Spontaneous
  Country: FR (occurrence: FR)
  Receive Date: 20130114
  Receipt Date: 20130114
  Transmission Date: 20140127
  Serious: Yes (Other)
  Sender: FDA-Public Use
  Company Number: FR-GALDERMA-FR13000088

PATIENT
  Age: 11 Year
  Sex: Female

DRUGS (1)
  1. CUTACNYL [Suspect]
     Indication: ACNE
     Dosage: 5%
     Route: 061
     Dates: start: 20121203, end: 20121204

REACTIONS (4)
  - Drug hypersensitivity [Recovered/Resolved]
  - Oedema [Recovered/Resolved]
  - Vomiting [Recovered/Resolved]
  - Erythema [Recovered/Resolved]
